FAERS Safety Report 25722473 (Version 1)
Quarter: 2025Q3

REPORT INFORMATION
  Report Type: Spontaneous
  Country: US (occurrence: US)
  Receive Date: 20250825
  Receipt Date: 20250825
  Transmission Date: 20251020
  Serious: No
  Sender: BAYER HEALTHCARE PHARMACEUTICALS INC.
  Company Number: US-BAYER-2025A111176

PATIENT
  Age: 45 Year
  Sex: Female
  Weight: 74.5 kg

DRUGS (4)
  1. KYLEENA [Suspect]
     Active Substance: LEVONORGESTREL
     Indication: Contraception
     Dosage: 17.5?G/DAY
     Route: 015
     Dates: start: 20250605, end: 20250714
  2. ACYCLOVIR [Concomitant]
     Active Substance: ACYCLOVIR
     Indication: Rash
     Route: 048
  3. ACYCLOVIR [Concomitant]
     Active Substance: ACYCLOVIR
     Indication: Pain
  4. CEFUROXIME [Concomitant]
     Active Substance: CEFUROXIME
     Dosage: 1500 MG, BID
     Route: 048

REACTIONS (5)
  - Vaginal haemorrhage [Not Recovered/Not Resolved]
  - Infection [None]
  - Device expulsion [Recovered/Resolved]
  - Urinary tract infection [Recovered/Resolved]
  - Pelvic pain [None]

NARRATIVE: CASE EVENT DATE: 20250607
